FAERS Safety Report 11046423 (Version 4)
Quarter: 2020Q1

REPORT INFORMATION
  Report Type: Report from Study
  Country: CA (occurrence: CA)
  Receive Date: 20150420
  Receipt Date: 20200319
  Transmission Date: 20200409
  Serious: Yes (Other)
  Sender: FDA-Public Use
  Company Number: CA-ROCHE-1558591

PATIENT
  Age: 45 Year
  Sex: Female

DRUGS (10)
  1. JANUVIA [Concomitant]
     Active Substance: SITAGLIPTIN PHOSPHATE
  2. RITUXAN [Suspect]
     Active Substance: RITUXIMAB
     Indication: DERMATOMYOSITIS
     Dosage: 1000 MG 2 WEEKS APART EVERY 6 MONTHS
     Route: 042
     Dates: start: 20190402
  3. METFORMIN [Concomitant]
     Active Substance: METFORMIN HYDROCHLORIDE
     Route: 065
  4. RITUXAN [Suspect]
     Active Substance: RITUXIMAB
     Indication: MYOSITIS
     Route: 042
     Dates: start: 20150330, end: 20150413
  5. PREDNISONE. [Suspect]
     Active Substance: PREDNISONE
     Indication: PRODUCT USED FOR UNKNOWN INDICATION
     Dosage: UNKNOWN
     Route: 065
  6. GLYBURIDE. [Concomitant]
     Active Substance: GLYBURIDE
  7. DIPHENHYDRAMINE. [Concomitant]
     Active Substance: DIPHENHYDRAMINE
     Indication: PREMEDICATION
     Route: 048
     Dates: start: 20150330, end: 20150413
  8. METHYLPREDNISOLONE. [Concomitant]
     Active Substance: METHYLPREDNISOLONE
     Indication: PREMEDICATION
     Route: 042
     Dates: start: 20150330, end: 20150413
  9. PREDNISONE. [Concomitant]
     Active Substance: PREDNISONE
  10. ACETAMINOPHEN. [Concomitant]
     Active Substance: ACETAMINOPHEN
     Indication: PREMEDICATION
     Route: 048
     Dates: start: 20150330, end: 20150413

REACTIONS (15)
  - Heart rate increased [Unknown]
  - Headache [Unknown]
  - Diarrhoea [Unknown]
  - Alopecia [Unknown]
  - Madarosis [Unknown]
  - Infusion related reaction [Unknown]
  - Intentional product use issue [Unknown]
  - Burning sensation [Unknown]
  - Infusion related reaction [Recovered/Resolved]
  - Off label use [Unknown]
  - Back pain [Unknown]
  - Eye infection [Unknown]
  - Vision blurred [Unknown]
  - Glaucoma [Unknown]
  - Acne [Unknown]

NARRATIVE: CASE EVENT DATE: 20150330
